FAERS Safety Report 8489976-3 (Version None)
Quarter: 2012Q2

REPORT INFORMATION
  Report Type: 
  Country: None (occurrence: None)
  Receive Date: 20120626
  Receipt Date: 20120626
  Transmission Date: 20120825
  Serious: Yes (Other)
  Sender: FDA-Public Use
  Company Number: 2011MA002953

PATIENT
  Sex: Female

DRUGS (29)
  1. CEPHALEXIN [Concomitant]
  2. SYNTHROID [Concomitant]
  3. POTASSIUM CHLORIDE [Concomitant]
  4. CARVEDILOL [Concomitant]
  5. ASMANEX TWISTHALER [Concomitant]
  6. XOPENEX [Concomitant]
  7. FUROSEMIDE [Concomitant]
  8. TRAMADOL HCL [Concomitant]
  9. HUMULIN INSULIN [Concomitant]
  10. LIPITOR [Concomitant]
  11. SINGULAIR [Concomitant]
  12. METOCLOPRAMIDE [Suspect]
     Dosage: 10 MG; PO
     Route: 048
     Dates: start: 19850101, end: 20091201
  13. PLAVIX [Concomitant]
  14. HYDROXYZINE [Concomitant]
  15. ADVAIR [Concomitant]
  16. ALBUTEROL [Concomitant]
  17. CLOPIDOGREL [Concomitant]
  18. NITROGLYCERIN [Concomitant]
  19. HYDROCODONE BITARTRATE AND ACETAMINOPHEN [Concomitant]
  20. CITALOPRAM HYDROBROMIDE [Concomitant]
  21. LISINOPRIL [Concomitant]
  22. LEVOTHYROXINE SODIUM [Concomitant]
  23. AMOXICILLIN [Concomitant]
  24. DENAVIR [Concomitant]
  25. NASONEX [Concomitant]
  26. CYCLOBENZAPRINE [Concomitant]
  27. ARICEPT [Concomitant]
  28. TOPROL-XL [Concomitant]
  29. TOBRAMYCIN [Concomitant]

REACTIONS (8)
  - DYSTONIA [None]
  - TREMOR [None]
  - ECONOMIC PROBLEM [None]
  - DYSKINESIA [None]
  - AKATHISIA [None]
  - TARDIVE DYSKINESIA [None]
  - EXTRAPYRAMIDAL DISORDER [None]
  - EMOTIONAL DISORDER [None]
